FAERS Safety Report 13743853 (Version 1)
Quarter: 2017Q3

REPORT INFORMATION
  Report Type: Spontaneous
  Country: CZ (occurrence: CZ)
  Receive Date: 20170711
  Receipt Date: 20170711
  Transmission Date: 20171127
  Serious: Yes (Hospitalization)
  Sender: FDA-Public Use
  Company Number: CZ-ROCHE-1961316

PATIENT
  Age: 46 Year
  Sex: Female
  Weight: 62 kg

DRUGS (8)
  1. HERCEPTIN [Suspect]
     Active Substance: TRASTUZUMAB
     Dosage: 372 MG
     Route: 042
  2. FEMARA [Concomitant]
     Active Substance: LETROZOLE
     Indication: CANCER HORMONAL THERAPY
     Route: 048
     Dates: start: 20170415
  3. DEXAMED (CZECH REPUBLIC) [Concomitant]
     Indication: PREMEDICATION
     Route: 065
     Dates: start: 20170511, end: 20170602
  4. RANITIDINE. [Concomitant]
     Active Substance: RANITIDINE
     Indication: PREMEDICATION
     Route: 065
     Dates: start: 20170511, end: 20170601
  5. HERCEPTIN [Suspect]
     Active Substance: TRASTUZUMAB
     Route: 042
     Dates: start: 20170511, end: 20170601
  6. DEGAN [Concomitant]
     Active Substance: METOCLOPRAMIDE HYDROCHLORIDE
     Indication: PREMEDICATION
     Route: 065
     Dates: start: 20170511, end: 20170601
  7. DITHIADEN [Concomitant]
     Active Substance: BISULEPIN
     Indication: PREMEDICATION
     Route: 065
     Dates: start: 20170511, end: 20170601
  8. HERCEPTIN [Suspect]
     Active Substance: TRASTUZUMAB
     Indication: BREAST CANCER
     Dosage: 496MG
     Route: 042

REACTIONS (4)
  - Angioedema [Recovered/Resolved]
  - Oedema peripheral [Recovered/Resolved]
  - Ileus [Recovered/Resolved]
  - Lip swelling [Recovered/Resolved]

NARRATIVE: CASE EVENT DATE: 20170512
